FAERS Safety Report 5736798-X (Version None)
Quarter: 2008Q2

REPORT INFORMATION
  Report Type: 
  Country: None (occurrence: None)
  Receive Date: 20080509
  Receipt Date: 20080424
  Transmission Date: 20081010
  Serious: Yes (Hospitalization, Other)
  Sender: FDA-Public Use
  Company Number: DAB-2008-00018

PATIENT
  Age: 52 Year
  Sex: Female
  Weight: 62.5964 kg

DRUGS (14)
  1. PACLITAXEL [Suspect]
     Indication: OVARIAN CANCER
     Dosage: RECEIVED 10CC, INTRAVENOUS
     Route: 042
     Dates: start: 20080402, end: 20080402
  2. CARBOPLATIN [Concomitant]
  3. ALOXI [Concomitant]
  4. DECADRON [Concomitant]
  5. ZANTAC [Concomitant]
  6. CLARITIN [Concomitant]
  7. ALBUTEROL [Concomitant]
  8. VALIUM [Concomitant]
  9. COMPAZINE [Concomitant]
  10. EFFEXOR [Concomitant]
  11. BACTRIM [Concomitant]
  12. DILAUDID [Concomitant]
  13. ZOFRAN [Concomitant]
  14. PROTONIX [Concomitant]

REACTIONS (7)
  - ABDOMINAL PAIN [None]
  - BACK PAIN [None]
  - BLOOD PRESSURE DIASTOLIC DECREASED [None]
  - CHEST DISCOMFORT [None]
  - CHEST PAIN [None]
  - OXYGEN SATURATION DECREASED [None]
  - PRURITUS GENERALISED [None]
